FAERS Safety Report 4835697-5 (Version None)
Quarter: 2005Q4

REPORT INFORMATION
  Report Type: 
  Country: None (occurrence: None)
  Receive Date: 20051121
  Receipt Date: 20051107
  Transmission Date: 20060501
  Serious: Yes (Disabling)
  Sender: FDA-Public Use
  Company Number: 2005146002

PATIENT
  Age: 44 Year
  Sex: Female

DRUGS (1)
  1. XALATAN [Suspect]
     Indication: GLAUCOMA
     Dosage: 1 DROP (1 DROP, 1 IN 1 D), OPHTHALMIC
     Route: 047
     Dates: start: 20000316, end: 20050901

REACTIONS (1)
  - ACCOMMODATION DISORDER [None]
